FAERS Safety Report 10765914 (Version 1)
Quarter: 2015Q1

REPORT INFORMATION
  Report Type: Spontaneous
  Country: US (occurrence: None)
  Receive Date: 20150204
  Receipt Date: 20150204
  Transmission Date: 20150721
  Serious: Yes (Hospitalization)
  Sender: FDA-Public Use
  Company Number: None

PATIENT
  Age: 85 Year
  Sex: Male
  Weight: 81.81 kg

DRUGS (15)
  1. ZANTAC [Concomitant]
     Active Substance: RANITIDINE HYDROCHLORIDE
  2. MVI WITH MINERALS [Concomitant]
  3. ELAVIL [Concomitant]
     Active Substance: AMITRIPTYLINE HYDROCHLORIDE
  4. LASIX [Concomitant]
     Active Substance: FUROSEMIDE
  5. AMIODARONE [Concomitant]
     Active Substance: AMIODARONE
  6. TYLENOL WITH CODEINE [Suspect]
     Active Substance: ACETAMINOPHEN\CODEINE PHOSPHATE
     Indication: PAIN
     Dosage: CHRONIC, 300/60, BID, PO?
     Route: 048
  7. OXYCONTIN [Suspect]
     Active Substance: OXYCODONE HYDROCHLORIDE
     Indication: FIBROMYALGIA
     Dosage: CHRONIC, 40MG, Q12, PO?
     Route: 048
  8. SEPTRA-DS??? [Concomitant]
  9. LOPID [Concomitant]
     Active Substance: GEMFIBROZIL
  10. ENALAPRIL [Concomitant]
     Active Substance: ENALAPRIL
  11. OXYCONTIN [Suspect]
     Active Substance: OXYCODONE HYDROCHLORIDE
     Indication: PAIN
     Dosage: CHRONIC, 40MG, Q12, PO?
     Route: 048
  12. CARVEDILOL. [Concomitant]
     Active Substance: CARVEDILOL
  13. DIGOXIN. [Concomitant]
     Active Substance: DIGOXIN
  14. TYLENOL WITH CODEINE [Suspect]
     Active Substance: ACETAMINOPHEN\CODEINE PHOSPHATE
     Indication: FIBROMYALGIA
     Dosage: CHRONIC, 300/60, BID, PO?
     Route: 048
  15. LEVOTHYROXINE [Concomitant]
     Active Substance: LEVOTHYROXINE

REACTIONS (4)
  - Somnolence [None]
  - Respiratory failure [None]
  - Pulse absent [None]
  - Accidental overdose [None]

NARRATIVE: CASE EVENT DATE: 20140609
